FAERS Safety Report 17224547 (Version 2)
Quarter: 2020Q1

REPORT INFORMATION
  Report Type: Report from Study
  Country: US (occurrence: US)
  Receive Date: 20200102
  Receipt Date: 20200217
  Transmission Date: 20200409
  Serious: Yes (Hospitalization)
  Sender: FDA-Public Use
  Company Number: US-009507513-1912USA012512

PATIENT
  Age: 71 Year
  Sex: Male

DRUGS (3)
  1. PEMBROLIZUMAB. [Suspect]
     Active Substance: PEMBROLIZUMAB
     Indication: RENAL CELL CARCINOMA
     Dosage: 5 MILLIGRAM, EVERY THREE WEEKS
     Route: 042
  2. OMEPRAZOLE. [Concomitant]
     Active Substance: OMEPRAZOLE
     Indication: PANCREATIC CYST
     Dosage: 40 MILLIGRAM
     Route: 048
  3. OMEPRAZOLE. [Concomitant]
     Active Substance: OMEPRAZOLE
     Indication: RENAL CELL CARCINOMA
     Dosage: DECREASED DOSE FROM 40 MG TO 20 MG
     Route: 048

REACTIONS (4)
  - Tremor [Unknown]
  - Abdominal pain upper [Unknown]
  - Incorrect dose administered [Unknown]
  - Chills [Unknown]

NARRATIVE: CASE EVENT DATE: 20200130
